FAERS Safety Report 20601834 (Version 1)
Quarter: 2022Q1

REPORT INFORMATION
  Report Type: Spontaneous
  Country: US (occurrence: US)
  Receive Date: 20220316
  Receipt Date: 20220316
  Transmission Date: 20220423
  Serious: No
  Sender: FDA-Public Use
  Company Number: US-TARO-2021TAR01147

PATIENT

DRUGS (1)
  1. TERCONAZOLE [Suspect]
     Active Substance: TERCONAZOLE
     Indication: Fungal infection
     Dosage: UNK UNK, OD, ONE APPLICATOR FULL
     Route: 067

REACTIONS (4)
  - Product colour issue [Unknown]
  - Infection [Not Recovered/Not Resolved]
  - Therapeutic product effect incomplete [Unknown]
  - Burning sensation [Not Recovered/Not Resolved]

NARRATIVE: CASE EVENT DATE: 20211105
